FAERS Safety Report 16369677 (Version 2)
Quarter: 2019Q2

REPORT INFORMATION
  Report Type: Spontaneous
  Country: DE (occurrence: DE)
  Receive Date: 20190530
  Receipt Date: 20190614
  Transmission Date: 20190711
  Serious: Yes (Death)
  Sender: FDA-Public Use
  Company Number: PHHY2019DE124544

PATIENT
  Age: 82 Year
  Sex: Male

DRUGS (16)
  1. CARVEDILOL 1A PHARMA [Concomitant]
     Active Substance: CARVEDILOL
     Indication: PRODUCT USED FOR UNKNOWN INDICATION
     Dosage: UNK (100 PIECES)
     Route: 065
     Dates: start: 20190129
  2. LISKANTIN [Concomitant]
     Active Substance: PRIMIDONE
     Dosage: UNK (200 PIECES)
     Route: 065
     Dates: start: 20190327
  3. LANTUS [Concomitant]
     Active Substance: INSULIN GLARGINE
     Indication: PRODUCT USED FOR UNKNOWN INDICATION
     Dosage: UNK (100E/M1 (10X3 ML))
     Route: 065
     Dates: start: 20190122
  4. CARVEDILOL 1A PHARMA [Concomitant]
     Active Substance: CARVEDILOL
     Dosage: UNK (100 PIECES)
     Route: 065
     Dates: start: 20190329
  5. CARVEDILOL 1A PHARMA [Concomitant]
     Active Substance: CARVEDILOL
     Dosage: UNK (100 PIECES)
     Route: 065
     Dates: start: 20190321
  6. RAMIPRIL STADA [Concomitant]
     Indication: PRODUCT USED FOR UNKNOWN INDICATION
     Dosage: UNK (100 PIECES)
     Route: 065
     Dates: start: 20190318
  7. MEKINIST [Suspect]
     Active Substance: TRAMETINIB DIMETHYL SULFOXIDE
     Indication: PRODUCT USED FOR UNKNOWN INDICATION
     Dosage: 2 MG, UNK
     Route: 065
     Dates: start: 20190507
  8. PARACETAMOL [Concomitant]
     Active Substance: ACETAMINOPHEN
     Indication: PRODUCT USED FOR UNKNOWN INDICATION
     Dosage: UNK (20 PIECES)
     Route: 065
     Dates: start: 20190520
  9. ACTRAPID [Concomitant]
     Active Substance: INSULIN HUMAN
     Indication: PRODUCT USED FOR UNKNOWN INDICATION
     Dosage: UNK (10X3 ML)
     Route: 065
     Dates: start: 20190315
  10. RAMIPRIL. [Concomitant]
     Active Substance: RAMIPRIL
     Indication: PRODUCT USED FOR UNKNOWN INDICATION
     Dosage: UNK (100 PIECES)
     Route: 065
     Dates: start: 20190311
  11. SIMVASTATIN RATIOPHARM [Concomitant]
     Active Substance: SIMVASTATIN
     Indication: PRODUCT USED FOR UNKNOWN INDICATION
     Dosage: UNK (100 PIECES)
     Route: 065
     Dates: start: 20190329
  12. LISKANTIN [Concomitant]
     Active Substance: PRIMIDONE
     Indication: PRODUCT USED FOR UNKNOWN INDICATION
     Dosage: UNK (200 PIECES)
     Route: 065
     Dates: start: 20190115
  13. TEUFELSKRALLE [Concomitant]
     Indication: PRODUCT USED FOR UNKNOWN INDICATION
     Dosage: UNK (200 PIECES) (PHYTEUMA)
     Route: 065
     Dates: start: 20190322
  14. TAFINLAR [Suspect]
     Active Substance: DABRAFENIB MESYLATE
     Indication: PRODUCT USED FOR UNKNOWN INDICATION
     Dosage: 75 MG, UNK
     Route: 065
     Dates: start: 20190507
  15. PARACETAMOL [Concomitant]
     Active Substance: ACETAMINOPHEN
     Dosage: UNK (20 PIECES)
     Route: 065
     Dates: start: 20190515
  16. TORASEMID [Concomitant]
     Active Substance: TORSEMIDE
     Indication: PRODUCT USED FOR UNKNOWN INDICATION
     Dosage: UNK (100 PIECES)
     Route: 065
     Dates: start: 20190430

REACTIONS (1)
  - Death [Fatal]

NARRATIVE: CASE EVENT DATE: 20190521
